FAERS Safety Report 11715662 (Version 4)
Quarter: 2021Q2

REPORT INFORMATION
  Report Type: Spontaneous
  Country: US (occurrence: US)
  Receive Date: 20151109
  Receipt Date: 20210530
  Transmission Date: 20210716
  Serious: Yes (Other)
  Sender: FDA-Public Use
  Company Number: US-JNJFOC-20151100787

PATIENT
  Age: 8 Year
  Sex: Male

DRUGS (2)
  1. RISPERDAL [Suspect]
     Active Substance: RISPERIDONE
     Indication: LEARNING DISABILITY
     Dosage: 0.25 MG TO 0.5 MG
     Route: 048
     Dates: start: 20010406, end: 20040914
  2. RISPERDAL [Suspect]
     Active Substance: RISPERIDONE
     Indication: DEPRESSION
     Route: 048
     Dates: start: 19990201

REACTIONS (7)
  - Suicidal ideation [Unknown]
  - Abnormal weight gain [Unknown]
  - Off label use [Unknown]
  - Breast enlargement [Unknown]
  - Depression [Unknown]
  - Emotional disorder [Unknown]
  - Product use in unapproved indication [Unknown]

NARRATIVE: CASE EVENT DATE: 19990201
